FAERS Safety Report 17019053 (Version 2)
Quarter: 2019Q4

REPORT INFORMATION
  Report Type: Report from Study
  Country: None (occurrence: SK)
  Receive Date: 20191112
  Receipt Date: 20191115
  Transmission Date: 20200122
  Serious: Yes (Hospitalization, Other)
  Sender: FDA-Public Use
  Company Number: SK-ABBVIE-19K-260-2997277-00

PATIENT
  Age: 8 Year
  Sex: Male

DRUGS (1)
  1. HUMIRA [Suspect]
     Active Substance: ADALIMUMAB
     Indication: RHEUMATIC DISORDER
     Route: 058
     Dates: start: 201603, end: 201810

REACTIONS (3)
  - Ascites [Unknown]
  - Dyspepsia [Unknown]
  - Hepatic vascular thrombosis [Unknown]
